FAERS Safety Report 8288918-3 (Version None)
Quarter: 2012Q2

REPORT INFORMATION
  Report Type: 
  Country: None (occurrence: None)
  Receive Date: 20120417
  Receipt Date: 20120411
  Transmission Date: 20120825
  Serious: Yes (Hospitalization)
  Sender: FDA-Public Use
  Company Number: US-BAYER-2011-106009

PATIENT
  Age: 26 Year
  Sex: Female
  Weight: 86.168 kg

DRUGS (17)
  1. METFORMIN HCL [Concomitant]
     Indication: POLYCYSTIC OVARIES
  2. YASMIN [Suspect]
     Indication: AMENORRHOEA
     Dates: start: 20050101, end: 20080101
  3. MUCINEX [Concomitant]
     Dosage: UNK
     Route: 048
     Dates: start: 20100204
  4. DROSPIRENONE AND ETHINYL ESTRADIOL [Suspect]
     Indication: AMENORRHOEA
     Dates: start: 20050101, end: 20080101
  5. DROSPIRENONE AND ETHINYL ESTRADIOL [Suspect]
     Dosage: UNK
     Dates: start: 20090101, end: 20100101
  6. YASMIN [Suspect]
     Dosage: UNK
     Dates: start: 20090101, end: 20100101
  7. IBUPROFEN [Concomitant]
     Dosage: 600 MG, UNK
     Route: 048
     Dates: start: 20100204
  8. ALBUTEROL [Concomitant]
     Dosage: UNK
     Dates: start: 20100204
  9. SPIRONOLACTONE [Concomitant]
     Indication: POLYCYSTIC OVARIES
  10. ASCORBIC ACID [Concomitant]
  11. YAZ [Suspect]
     Indication: AMENORRHOEA
     Dates: start: 20050101, end: 20080101
  12. ZYRTEC [Concomitant]
  13. LORATADINE [Concomitant]
  14. NSAID'S [Concomitant]
  15. YAZ [Suspect]
     Indication: DYSMENORRHOEA
     Dosage: UNK
     Dates: start: 20090101, end: 20100101
  16. CODEINE W/GUAIFENESIN [Concomitant]
     Dosage: UNK
     Route: 048
     Dates: start: 20100204
  17. DIURETICS [Concomitant]

REACTIONS (8)
  - PULMONARY EMBOLISM [None]
  - ANHEDONIA [None]
  - INJURY [None]
  - DEEP VEIN THROMBOSIS [None]
  - GENERAL PHYSICAL HEALTH DETERIORATION [None]
  - PAIN [None]
  - ANXIETY [None]
  - EMOTIONAL DISTRESS [None]
